FAERS Safety Report 21517336 (Version 1)
Quarter: 2022Q4

REPORT INFORMATION
  Report Type: Report from Study
  Country: US (occurrence: US)
  Receive Date: 20221028
  Receipt Date: 20221028
  Transmission Date: 20230113
  Serious: Yes (Hospitalization)
  Sender: FDA-Public Use
  Company Number: US-GILEAD-2022-0602746

PATIENT
  Age: 13 Year
  Sex: Male

DRUGS (19)
  1. AZTREONAM LYSINE [Suspect]
     Active Substance: AZTREONAM LYSINE
     Indication: Cystic fibrosis
     Dosage: 1 DOSAGE FORM, TID, 14/14
     Route: 055
     Dates: start: 20220208
  2. MALATHION [Concomitant]
     Active Substance: MALATHION
  3. LORATADINE [Concomitant]
     Active Substance: LORATADINE
  4. AZITHROMYCIN [Concomitant]
     Active Substance: AZITHROMYCIN
  5. ZENPEP [Concomitant]
     Active Substance: PANCRELIPASE AMYLASE\PANCRELIPASE LIPASE\PANCRELIPASE PROTEASE
  6. MINERALS\VITAMINS [Concomitant]
     Active Substance: MINERALS\VITAMINS
  7. PROAIR HFA [Concomitant]
     Active Substance: ALBUTEROL SULFATE
  8. OMEPRAZOLE [Concomitant]
     Active Substance: OMEPRAZOLE
  9. TOBRAMYCIN [Concomitant]
     Active Substance: TOBRAMYCIN
  10. DULERA [Concomitant]
     Active Substance: FORMOTEROL FUMARATE DIHYDRATE\MOMETASONE FUROATE
  11. FLUTICASONE [Concomitant]
     Active Substance: FLUTICASONE
  12. MONTELUKAST [Concomitant]
     Active Substance: MONTELUKAST SODIUM
  13. RELIZORB [Concomitant]
  14. SODIUM CHLORIDE [Concomitant]
     Active Substance: SODIUM CHLORIDE
  15. TRIKAFTA [Concomitant]
     Active Substance: ELEXACAFTOR\IVACAFTOR\TEZACAFTOR
  16. CLONAZEPAM [Concomitant]
     Active Substance: CLONAZEPAM
  17. FLOVENT [Concomitant]
     Active Substance: FLUTICASONE PROPIONATE
  18. ALBUTEROL SULFATE [Concomitant]
     Active Substance: ALBUTEROL SULFATE
  19. PULMOZYME [Concomitant]
     Active Substance: DORNASE ALFA

REACTIONS (2)
  - COVID-19 [Not Recovered/Not Resolved]
  - Off label use [Unknown]
